FAERS Safety Report 15622855 (Version 10)
Quarter: 2022Q2

REPORT INFORMATION
  Report Type: Report from Study
  Country: JP (occurrence: JP)
  Receive Date: 20181115
  Receipt Date: 20220510
  Transmission Date: 20220721
  Serious: Yes (Hospitalization, Other)
  Sender: FDA-Public Use
  Company Number: JP-PFIZER INC-2018466280

PATIENT
  Age: 7 Year
  Sex: Male
  Weight: 18.6 kg

DRUGS (34)
  1. GENOTROPIN [Suspect]
     Active Substance: SOMATROPIN
     Indication: Growth hormone deficiency
     Dosage: 0.45 MG, DAILY
     Route: 058
     Dates: start: 20180625, end: 20181101
  2. CETIRIZINE HYDROCHLORIDE [Concomitant]
     Active Substance: CETIRIZINE HYDROCHLORIDE
     Dosage: UNK
     Dates: start: 20170325, end: 20181017
  3. CETIRIZINE HYDROCHLORIDE [Concomitant]
     Active Substance: CETIRIZINE HYDROCHLORIDE
     Dosage: UNK
     Dates: start: 20181018, end: 20181022
  4. CARBOCYSTEINE [Concomitant]
     Active Substance: CARBOCYSTEINE
     Dosage: UNK
     Dates: start: 20170124, end: 20180611
  5. CARBOCYSTEINE [Concomitant]
     Active Substance: CARBOCYSTEINE
     Dosage: 33.3 %
     Dates: start: 20180612, end: 20180618
  6. CARBOCYSTEINE [Concomitant]
     Active Substance: CARBOCYSTEINE
     Dosage: UNK
     Dates: start: 20180619, end: 20181017
  7. CARBOCYSTEINE [Concomitant]
     Active Substance: CARBOCYSTEINE
     Dosage: UNK
     Dates: start: 20181018, end: 20181022
  8. PROCATEROL HYDROCHLORIDE [Concomitant]
     Active Substance: PROCATEROL HYDROCHLORIDE
     Dosage: 0.2 G, UNK
     Dates: start: 20170325, end: 20181017
  9. PROCATEROL HYDROCHLORIDE [Concomitant]
     Active Substance: PROCATEROL HYDROCHLORIDE
     Dosage: UNK
     Dates: start: 20181018, end: 20181022
  10. FLUTICASONE FUROATE [Concomitant]
     Active Substance: FLUTICASONE FUROATE
     Dosage: 27.5 UG, UNK
     Dates: start: 20160910, end: 20181017
  11. TULOBUTEROL [Concomitant]
     Active Substance: TULOBUTEROL
     Dosage: UNK
     Dates: start: 20170124, end: 20181017
  12. KETOTIFEN [Concomitant]
     Active Substance: KETOTIFEN
     Dosage: 0.1 %
     Dates: start: 20180228, end: 20181017
  13. PATANOL [Concomitant]
     Active Substance: OLOPATADINE HYDROCHLORIDE
     Dosage: 0.1 %
     Dates: start: 20180630
  14. KETOPROFEN [Concomitant]
     Active Substance: KETOPROFEN
     Dosage: 20 MG, UNK
     Dates: start: 20180713, end: 20180716
  15. RINDERON VG [Concomitant]
     Active Substance: BETAMETHASONE VALERATE\GENTAMICIN SULFATE
     Dosage: UNK
     Dates: start: 20180718, end: 20180803
  16. LOCOID [Concomitant]
     Active Substance: HYDROCORTISONE BUTYRATE
     Dosage: 0.1 %
     Dates: start: 20180718, end: 20180803
  17. LOCOID [Concomitant]
     Active Substance: HYDROCORTISONE BUTYRATE
     Dosage: 0.1 %
     Dates: start: 20180901
  18. ZYRTEC [Concomitant]
     Active Substance: CETIRIZINE HYDROCHLORIDE
     Dosage: 1.25 %
     Dates: start: 20180720, end: 20180726
  19. PENTOSAN POLYSULFATE SODIUM [Concomitant]
     Active Substance: PENTOSAN POLYSULFATE SODIUM
     Dosage: LOTION (EXCEPT LOTION FOR EYE) 0.3 %
     Dates: start: 20180630, end: 20180717
  20. ASVERIN (TIPEPIDINE HIBENZATE) [Concomitant]
     Active Substance: TIPEPIDINE HIBENZATE
     Dosage: POWDER (EXCEPT [DPO])
     Dates: start: 20180612, end: 20180618
  21. PRANLUKAST [Concomitant]
     Active Substance: PRANLUKAST
     Dosage: UNK
     Dates: start: 20180612, end: 20180618
  22. INTAL [Concomitant]
     Active Substance: CROMOLYN SODIUM
     Dosage: SOLUTION
     Dates: start: 20180612, end: 20180618
  23. PROCATEROL HYDROCHLORIDE [Concomitant]
     Active Substance: PROCATEROL HYDROCHLORIDE
     Dosage: SOLUTION, 0.3/0.01 % ML
     Dates: start: 20180612, end: 20181017
  24. DEXTROSE [Concomitant]
     Active Substance: DEXTROSE
     Dosage: UNK
     Dates: start: 20180806, end: 20180806
  25. DEXTROSE [Concomitant]
     Active Substance: DEXTROSE
     Dosage: UNK
     Dates: start: 20180827, end: 20180827
  26. LOCOIDAN [Concomitant]
     Dosage: OINTMENT, CREAM
     Dates: start: 20180901
  27. MIYA-BM [Concomitant]
     Active Substance: CLOSTRIDIUM BUTYRICUM SPORES STRAIN M-55
     Dosage: UNK
     Dates: start: 20180827, end: 20180830
  28. DEXTROSE\SODIUM CHLORIDE\SODIUM LACTATE [Concomitant]
     Active Substance: DEXTROSE\SODIUM CHLORIDE\SODIUM LACTATE
     Dosage: SOLUTION
     Dates: start: 20180806, end: 20180806
  29. DEXTROSE\SODIUM CHLORIDE\SODIUM LACTATE [Concomitant]
     Active Substance: DEXTROSE\SODIUM CHLORIDE\SODIUM LACTATE
     Dosage: SOLUTION
     Dates: start: 20180827, end: 20180827
  30. NAUZELIN [Concomitant]
     Active Substance: DOMPERIDONE
     Dosage: UNK
     Dates: start: 20180806, end: 20180806
  31. NAUZELIN [Concomitant]
     Active Substance: DOMPERIDONE
     Dosage: UNK
     Dates: start: 20180827, end: 20180827
  32. LEVOFLOXACIN [Concomitant]
     Active Substance: LEVOFLOXACIN
     Dosage: 0.5 % SOLUTION
     Dates: start: 20180725, end: 20180831
  33. LEVOCABASTINE HYDROCHLORIDE [Concomitant]
     Active Substance: LEVOCABASTINE HYDROCHLORIDE
     Dosage: 0.025 % SOLUTION
     Dates: start: 20180810, end: 20180810
  34. MYSER [DIFLUPREDNATE] [Concomitant]
     Dosage: 0.05 % OINTMENT, CREAM
     Dates: start: 20180804, end: 20180831

REACTIONS (1)
  - Craniopharyngioma [Recovering/Resolving]

NARRATIVE: CASE EVENT DATE: 20181101
